FAERS Safety Report 22995408 (Version 4)
Quarter: 2023Q4

REPORT INFORMATION
  Report Type: Report from Study
  Country: ES (occurrence: ES)
  Receive Date: 20230927
  Receipt Date: 20231117
  Transmission Date: 20240110
  Serious: Yes (Hospitalization)
  Sender: FDA-Public Use
  Company Number: ES-SA-SAC20230922000658

PATIENT
  Age: 56 Year
  Sex: Female
  Weight: 57.9 kg

DRUGS (9)
  1. ISATUXIMAB [Suspect]
     Active Substance: ISATUXIMAB
     Indication: Plasma cell myeloma
     Dosage: 540 MG
     Route: 042
     Dates: start: 20230904, end: 20230904
  2. ISATUXIMAB [Suspect]
     Active Substance: ISATUXIMAB
     Dosage: 540 MG
     Route: 042
     Dates: start: 20230918, end: 20230918
  3. BORTEZOMIB [Suspect]
     Active Substance: BORTEZOMIB
     Indication: Plasma cell myeloma
     Dosage: 1.98 MG
     Route: 058
     Dates: start: 20230904, end: 20230904
  4. BORTEZOMIB [Suspect]
     Active Substance: BORTEZOMIB
     Dosage: 1.98 MG
     Route: 058
     Dates: start: 20230914, end: 20230914
  5. DEXAMETHASONE [Suspect]
     Active Substance: DEXAMETHASONE
     Indication: Plasma cell myeloma
     Dosage: 40 MG
     Route: 048
     Dates: start: 20230904, end: 20230904
  6. DEXAMETHASONE [Suspect]
     Active Substance: DEXAMETHASONE
     Dosage: 40 MG
     Route: 048
     Dates: start: 20230915, end: 20230915
  7. IBERDOMIDE [Suspect]
     Active Substance: IBERDOMIDE
     Indication: Plasma cell myeloma
     Dosage: 1.6 MG
     Route: 048
     Dates: start: 20230904, end: 20230904
  8. IBERDOMIDE [Suspect]
     Active Substance: IBERDOMIDE
     Dosage: 1.6 MG
     Route: 048
     Dates: start: 20230918, end: 20230918
  9. METOCLOPRAMIDE [Concomitant]
     Active Substance: METOCLOPRAMIDE
     Dosage: 10 MG, TID

REACTIONS (1)
  - Ileus paralytic [Recovered/Resolved]

NARRATIVE: CASE EVENT DATE: 20230906
